FAERS Safety Report 8879144 (Version 1)
Quarter: 2012Q4

REPORT INFORMATION
  Report Type: Spontaneous
  Country: US (occurrence: None)
  Receive Date: 20121031
  Receipt Date: 20121031
  Transmission Date: 20130627
  Serious: Yes (Death)
  Sender: FDA-Public Use
  Company Number: None

PATIENT
  Age: 85 Year
  Sex: Female

DRUGS (6)
  1. REVLIMID [Suspect]
     Indication: MULTIPLE MYELOMA
     Dosage: 10mg, qdx21d/28d, orally
     Route: 048
     Dates: start: 201103, end: 201203
  2. REVLIMID [Concomitant]
  3. DECADRON [Concomitant]
  4. TYLENOL W/CODEINE [Concomitant]
  5. MEVACOR [Concomitant]
  6. NORVASC [Concomitant]

REACTIONS (3)
  - Disease progression [None]
  - Drug intolerance [None]
  - Plasma cell myeloma [None]
